FAERS Safety Report 9672302 (Version 2)
Quarter: 2013Q4

REPORT INFORMATION
  Report Type: Report from Study
  Country: JP (occurrence: JP)
  Receive Date: 20131106
  Receipt Date: 20131126
  Transmission Date: 20140711
  Serious: Yes (Hospitalization, Disabling, Other)
  Sender: FDA-Public Use
  Company Number: JP-B.I. PHARMACEUTICALS,INC./RIDGEFIELD-2013-BI-35253NB

PATIENT
  Age: 69 Year
  Sex: Female

DRUGS (14)
  1. MIRAPEX LA [Suspect]
     Indication: PARKINSON^S DISEASE
     Dosage: 2.25 MG
     Route: 048
     Dates: start: 20120928, end: 20121011
  2. MIRAPEX LA [Suspect]
     Dosage: 3 MG
     Route: 048
     Dates: start: 20121012, end: 20121025
  3. MIRAPEX LA [Suspect]
     Dosage: 4.5 MG
     Route: 048
     Dates: start: 20121026
  4. RIVOTRIL [Suspect]
     Indication: PARKINSON^S DISEASE
     Dosage: 0.5 MG
     Route: 048
  5. ZYPREXA [Suspect]
     Indication: PARKINSON^S DISEASE
     Dosage: 5 MG
     Route: 048
  6. LUNESTA [Suspect]
     Indication: PARKINSON^S DISEASE
     Dosage: 2 MG
     Route: 048
     Dates: start: 20130712
  7. NEODOPASTON [Concomitant]
     Indication: PARKINSON^S DISEASE
     Dosage: 600 MG
     Route: 048
  8. DOPS [Concomitant]
     Indication: PARKINSON^S DISEASE
     Dosage: 300 MG
     Route: 048
  9. MAGMITT [Concomitant]
     Indication: PARKINSON^S DISEASE
     Dosage: 1980 MG
     Route: 048
  10. RISUMIC [Concomitant]
     Indication: PARKINSON^S DISEASE
     Dosage: 20 MG
     Route: 048
  11. NEXIUM [Concomitant]
     Dosage: 20 MG
     Route: 048
  12. MEVALOTIN [Concomitant]
     Dosage: 5 MG
     Route: 048
  13. FLORINEF [Concomitant]
     Indication: PARKINSON^S DISEASE
     Dosage: 0.1 MG
     Route: 048
  14. PURSENNID [Concomitant]
     Indication: PARKINSON^S DISEASE
     Dosage: 36 MG
     Route: 048

REACTIONS (2)
  - Femoral neck fracture [Recovered/Resolved with Sequelae]
  - Fall [Recovered/Resolved with Sequelae]
